FAERS Safety Report 5384654-1 (Version None)
Quarter: 2007Q3

REPORT INFORMATION
  Report Type: 
  Country: None (occurrence: None)
  Receive Date: 20070711
  Receipt Date: 20070702
  Transmission Date: 20080115
  Serious: Yes (Other)
  Sender: FDA-Public Use
  Company Number: GB-ALLERGAN-0707300US

PATIENT
  Sex: Female

DRUGS (11)
  1. OCUFEN [Suspect]
     Indication: PREOPERATIVE CARE
     Route: 047
     Dates: start: 20070605
  2. OCUFEN [Suspect]
  3. OCUFEN [Suspect]
  4. CHLORAMPHENICOL UNSPEC [Suspect]
     Indication: PREOPERATIVE CARE
     Dates: start: 20070605
  5. CYCLOPENTOLATE MINIMS [Suspect]
     Indication: PREOPERATIVE CARE
     Dates: start: 20070605
  6. PHENYLEPHRINE [Suspect]
     Indication: PREOPERATIVE CARE
     Dates: start: 20070605
  7. LIDOCAINE [Suspect]
     Indication: PREOPERATIVE CARE
     Dates: start: 20070605
  8. POVIDONE IODINE [Suspect]
     Indication: PREOPERATIVE CARE
     Dates: start: 20070605
  9. BALANCED SALT [Suspect]
     Indication: PREOPERATIVE CARE
     Dates: start: 20070605
  10. HEALON [Suspect]
     Indication: PREOPERATIVE CARE
     Dates: start: 20070605
  11. BETAMETHASONE/NEOMYCIN [Suspect]
     Indication: POSTOPERATIVE CARE
     Dates: start: 20070605

REACTIONS (1)
  - TOXIC ANTERIOR SEGMENT SYNDROME [None]
